FAERS Safety Report 15004103 (Version 1)
Quarter: 2018Q2

REPORT INFORMATION
  Report Type: Spontaneous
  Country: GB (occurrence: GB)
  Receive Date: 20180613
  Receipt Date: 20180613
  Transmission Date: 20180711
  Serious: Yes (Other)
  Sender: FDA-Public Use
  Company Number: GB-TEVA-2018-GB-905434

PATIENT
  Age: 72 Year
  Sex: Male
  Weight: 77.09 kg

DRUGS (10)
  1. ROSUVASTATIN. [Suspect]
     Active Substance: ROSUVASTATIN
     Route: 048
  2. VOLTAROL EMULGEL P [Concomitant]
     Dosage: 2 DOSAGE FORMS DAILY; APPLY
     Dates: start: 20180207
  3. ACETYLSALICYLIC ACID [Concomitant]
     Active Substance: ASPIRIN
     Dosage: 75 MILLIGRAM DAILY;
     Dates: start: 20180207
  4. SILDENAFIL. [Concomitant]
     Active Substance: SILDENAFIL
     Dosage: AS DIRECTED
     Dates: start: 20180207
  5. VILDAGLIPTIN [Concomitant]
     Active Substance: VILDAGLIPTIN
     Dosage: 100 MILLIGRAM DAILY;
     Dates: start: 20180207
  6. OMEPRAZOLE. [Concomitant]
     Active Substance: OMEPRAZOLE
     Dosage: 20 MILLIGRAM DAILY;
     Dates: start: 20180207
  7. VENTOLIN [Concomitant]
     Active Substance: ALBUTEROL SULFATE
     Dosage: AS DIRECTED
     Dates: start: 20180110
  8. CLENIL MODULITE [Concomitant]
     Active Substance: BECLOMETHASONE DIPROPIONATE
     Indication: ASTHMA
     Dosage: 400 MICROGRAM DAILY; FOR THREE MONTHS THEN REDUCE TO 1 PUFF TWICE A DAY IF CONTROLLED
     Dates: start: 20180409
  9. METFORMIN [Concomitant]
     Active Substance: METFORMIN HYDROCHLORIDE
     Dosage: 1000 MILLIGRAM DAILY;
     Dates: start: 20180409
  10. RAMIPRIL. [Concomitant]
     Active Substance: RAMIPRIL
     Dosage: 2.5 MILLIGRAM DAILY;
     Dates: start: 20180207

REACTIONS (1)
  - Muscle spasms [Recovered/Resolved]

NARRATIVE: CASE EVENT DATE: 2015
